FAERS Safety Report 24856978 (Version 1)
Quarter: 2025Q1

REPORT INFORMATION
  Report Type: Spontaneous
  Country: US (occurrence: US)
  Receive Date: 20250117
  Receipt Date: 20250117
  Transmission Date: 20250409
  Serious: No
  Sender: SK LIFE SCIENCE
  Company Number: US-SK LIFE SCIENCE, INC-SKPVG-2024-002348

PATIENT

DRUGS (5)
  1. XCOPRI [Suspect]
     Active Substance: CENOBAMATE
     Indication: Seizure
     Route: 048
     Dates: start: 2023
  2. XCOPRI [Suspect]
     Active Substance: CENOBAMATE
     Indication: Epilepsy
     Dosage: 250 MILLIGRAM, QD
     Route: 048
     Dates: end: 202409
  3. XCOPRI [Suspect]
     Active Substance: CENOBAMATE
     Indication: Partial seizures
     Dosage: 100 MILLIGRAM, QD (PARTIAL DOSE)
     Route: 048
     Dates: start: 2024, end: 20241005
  4. XCOPRI [Suspect]
     Active Substance: CENOBAMATE
     Dosage: TWO 150 MG TABLETS TOGETHER FOR 300 MG DOSE
     Route: 048
  5. LAMOTRIGINE [Concomitant]
     Active Substance: LAMOTRIGINE
     Indication: Product used for unknown indication
     Route: 065

REACTIONS (8)
  - Product dose omission issue [Not Recovered/Not Resolved]
  - Incorrect dose administered [Recovered/Resolved]
  - Seizure [Unknown]
  - Seizure [Unknown]
  - Influenza [Unknown]
  - Menopause [Unknown]
  - Product prescribing error [Unknown]
  - Somnolence [Not Recovered/Not Resolved]

NARRATIVE: CASE EVENT DATE: 20240101
